FAERS Safety Report 23935335 (Version 2)
Quarter: 2024Q2

REPORT INFORMATION
  Report Type: Spontaneous
  Country: CN (occurrence: CN)
  Receive Date: 20240604
  Receipt Date: 20240608
  Transmission Date: 20240715
  Serious: Yes (Hospitalization)
  Sender: FDA-Public Use
  Company Number: CN-JNJFOC-20240582224

PATIENT
  Age: 69 Year
  Sex: Male
  Weight: 48.5 kg

DRUGS (5)
  1. DARZALEX [Suspect]
     Active Substance: DARATUMUMAB
     Indication: Plasma cell myeloma
     Dosage: 400 MG QD IVGTT ON D1-2
     Route: 041
     Dates: start: 20240518, end: 20240519
  2. DARZALEX [Suspect]
     Active Substance: DARATUMUMAB
     Dosage: 800 MG ON D8, 15 AND 22
     Route: 041
     Dates: start: 20240518, end: 20240519
  3. LENALIDOMIDE [Suspect]
     Active Substance: LENALIDOMIDE
     Indication: Plasma cell myeloma
     Dosage: 25 MG PO QOD ON D1-21
     Route: 048
     Dates: start: 20240518, end: 20240528
  4. DEXAMETHASONE [Suspect]
     Active Substance: DEXAMETHASONE
     Indication: Plasma cell myeloma
     Dosage: 20 MG QD IVGTT ON D1-2
     Route: 041
     Dates: start: 20240518, end: 20240519
  5. DEXAMETHASONE [Suspect]
     Active Substance: DEXAMETHASONE
     Dosage: 40 MG ON D8, 15 AND 22;
     Route: 041
     Dates: start: 20240518, end: 20240519

REACTIONS (1)
  - Myelosuppression [Recovering/Resolving]

NARRATIVE: CASE EVENT DATE: 20240524
